FAERS Safety Report 19078175 (Version 1)
Quarter: 2021Q1

REPORT INFORMATION
  Report Type: Spontaneous
  Country: US (occurrence: US)
  Receive Date: 20210331
  Receipt Date: 20210331
  Transmission Date: 20210420
  Serious: Yes (Hospitalization)
  Sender: FDA-Public Use
  Company Number: None

PATIENT
  Age: 65 Year
  Sex: Male
  Weight: 102.5 kg

DRUGS (2)
  1. CASIRIVIMAB 120MG/ML [Suspect]
     Active Substance: CASIRIVIMAB
     Indication: COVID-19
     Route: 042
     Dates: start: 20210114
  2. IMDEVIMAB 120MG/ML [Suspect]
     Active Substance: IMDEVIMAB
     Indication: COVID-19 TREATMENT

REACTIONS (3)
  - Hypoxia [None]
  - Dyspnoea [None]
  - COVID-19 pneumonia [None]

NARRATIVE: CASE EVENT DATE: 20210116
